FAERS Safety Report 17425919 (Version 1)
Quarter: 2020Q1

REPORT INFORMATION
  Report Type: Spontaneous
  Country: US (occurrence: US)
  Receive Date: 20200217
  Receipt Date: 20200217
  Transmission Date: 20200409
  Serious: Yes (Other)
  Sender: FDA-Public Use
  Company Number: US-ASTELLAS-2020US005877

PATIENT
  Age: 61 Year
  Sex: Female

DRUGS (1)
  1. MYRBETRIQ [Suspect]
     Active Substance: MIRABEGRON
     Indication: PRODUCT USED FOR UNKNOWN INDICATION
     Route: 065
     Dates: start: 20200123, end: 20200210

REACTIONS (4)
  - Palpitations [Unknown]
  - Renal impairment [Unknown]
  - Heart rate abnormal [Unknown]
  - Chromaturia [Unknown]

NARRATIVE: CASE EVENT DATE: 202001
